FAERS Safety Report 4471540-4 (Version None)
Quarter: 2004Q4

REPORT INFORMATION
  Report Type: 
  Country: None (occurrence: None)
  Receive Date: 20041012
  Receipt Date: 20040826
  Transmission Date: 20050328
  Serious: Yes (Other)
  Sender: FDA-Public Use
  Company Number: FR-ABBOTT-04P-056-0271611-00

PATIENT
  Age: 10 Year
  Sex: Female

DRUGS (5)
  1. MICROPAKINE [Suspect]
     Indication: EPILEPSY
     Route: 048
     Dates: start: 20040601, end: 20040901
  2. MICROPAKINE [Interacting]
     Route: 048
     Dates: start: 20040901
  3. VIGABATRIN [Interacting]
     Indication: DRUG USE FOR UNKNOWN INDICATION
     Route: 048
     Dates: start: 20020101
  4. VIGABATRIN [Interacting]
  5. VALPROATE SODIUM [Concomitant]
     Indication: EPILEPSY
     Route: 048
     Dates: end: 20040601

REACTIONS (3)
  - CONVULSION [None]
  - DRUG INEFFECTIVE [None]
  - DRUG INTERACTION [None]
